FAERS Safety Report 4622519-0 (Version None)
Quarter: 2005Q1

REPORT INFORMATION
  Report Type: 
  Country: None (occurrence: None)
  Receive Date: 20050317
  Receipt Date: 20040526
  Transmission Date: 20050727
  Serious: Yes (Other)
  Sender: FDA-Public Use
  Company Number: PHEH2004US05606

PATIENT
  Age: 20 Year
  Sex: Male

DRUGS (2)
  1. TRILEPTAL [Suspect]
     Indication: BIPOLAR DISORDER
     Dosage: 75 MG, QHS, ORAL; 300 MG, QHS, ORAL
     Route: 048
     Dates: end: 20040520
  2. TRILEPTAL [Suspect]
     Indication: BIPOLAR DISORDER
     Dosage: 75 MG, QHS, ORAL; 300 MG, QHS, ORAL
     Route: 048
     Dates: start: 20040514

REACTIONS (3)
  - DERMATITIS EXFOLIATIVE [None]
  - STEVENS-JOHNSON SYNDROME [None]
  - URTICARIA [None]
